FAERS Safety Report 17241365 (Version 1)
Quarter: 2020Q1

REPORT INFORMATION
  Report Type: Spontaneous
  Country: US (occurrence: US)
  Receive Date: 20200101
  Receipt Date: 20200101
  Transmission Date: 20200409
  Serious: Yes (Other)
  Sender: FDA-Public Use
  Company Number: None

PATIENT
  Age: 37 Year
  Sex: Male
  Weight: 126 kg

DRUGS (1)
  1. 72HP GOLD EDITION (DIETARY SUPPLEMENT) [Suspect]
     Active Substance: DIETARY SUPPLEMENT
     Indication: SEXUAL DYSFUNCTION
     Dates: start: 20191223, end: 20191223

REACTIONS (3)
  - Seminal vesicular disorder [None]
  - Male sexual dysfunction [None]
  - Pain [None]

NARRATIVE: CASE EVENT DATE: 20191223
